FAERS Safety Report 9779455 (Version 1)
Quarter: 2013Q4

REPORT INFORMATION
  Report Type: Spontaneous
  Country: FR (occurrence: FR)
  Receive Date: 20131223
  Receipt Date: 20131223
  Transmission Date: 20140711
  Serious: Yes (Hospitalization, Other)
  Sender: FDA-Public Use
  Company Number: FR-PFIZER INC-2013364530

PATIENT
  Age: 33 Year
  Sex: Female

DRUGS (7)
  1. LYRICA [Suspect]
     Dosage: 21 DF, SINGLE
     Route: 048
     Dates: start: 20131020, end: 20131020
  2. OLANZAPINE [Suspect]
     Dosage: UNK
     Route: 048
  3. OLANZAPINE [Suspect]
     Dosage: 28 DF, SINGLE 7.5 MG
     Route: 048
     Dates: start: 20131020, end: 20131020
  4. LEXOMIL [Suspect]
     Dosage: UNK
     Route: 048
  5. LEXOMIL [Suspect]
     Dosage: 15 DF, SINGLE
     Route: 048
     Dates: start: 20131020, end: 20131020
  6. SEROPLEX [Suspect]
     Route: 048
  7. SEROPLEX [Suspect]
     Dosage: 12 DF, SINGLE 20 MG
     Route: 048
     Dates: start: 20131020, end: 20131020

REACTIONS (7)
  - Intentional overdose [Recovering/Resolving]
  - Toxicity to various agents [Recovering/Resolving]
  - Confusional state [Recovering/Resolving]
  - Somnolence [Recovering/Resolving]
  - Depressed level of consciousness [Recovering/Resolving]
  - Agitation [Unknown]
  - Drug screen positive [Unknown]
